FAERS Safety Report 8605229-4 (Version None)
Quarter: 2012Q3

REPORT INFORMATION
  Report Type: 
  Country: None (occurrence: None)
  Receive Date: 20120820
  Receipt Date: 20120809
  Transmission Date: 20120928
  Serious: Yes (Hospitalization)
  Sender: FDA-Public Use
  Company Number: US-US-EMD SERONO, INC.-7153857

PATIENT
  Sex: Female

DRUGS (5)
  1. BACLOFEN [Concomitant]
     Indication: PAIN
  2. NEURONTIN [Concomitant]
     Indication: PAIN
  3. REBIF [Suspect]
     Indication: MULTIPLE SCLEROSIS
     Dates: start: 20060101
  4. REBIF [Suspect]
     Route: 057
     Dates: start: 20110401
  5. TEGRETOL [Concomitant]
     Indication: PRODUCT USED FOR UNKNOWN INDICATION

REACTIONS (4)
  - MUSCULAR WEAKNESS [None]
  - FALL [None]
  - DEPRESSION [None]
  - THYROID FUNCTION TEST ABNORMAL [None]
